FAERS Safety Report 6453618-9 (Version None)
Quarter: 2009Q4

REPORT INFORMATION
  Report Type: 
  Country: None (occurrence: None)
  Receive Date: 20091124
  Receipt Date: 20091109
  Transmission Date: 20100525
  Serious: Yes (Hospitalization, Other)
  Sender: FDA-Public Use
  Company Number: PHBS2008GB05073

PATIENT
  Age: 76 Year
  Sex: Female

DRUGS (3)
  1. STALEVO 100 [Suspect]
     Indication: PARKINSON'S DISEASE
     Dosage: 100 MG 5 TIMES/DAY
     Route: 065
  2. AZILECT [Suspect]
     Indication: PARKINSON'S DISEASE
     Dosage: 01 MG FOUR TIMES A DAY
  3. TRAMADOL HCL [Concomitant]

REACTIONS (16)
  - AGITATION [None]
  - CHROMATURIA [None]
  - CONFUSIONAL STATE [None]
  - DEHYDRATION [None]
  - DYSKINESIA [None]
  - KNEE ARTHROPLASTY [None]
  - LABORATORY TEST ABNORMAL [None]
  - MUSCLE RIGIDITY [None]
  - PARANOIA [None]
  - PARKINSON'S DISEASE [None]
  - PYREXIA [None]
  - SELF INJURIOUS BEHAVIOUR [None]
  - SEROTONIN SYNDROME [None]
  - THERAPEUTIC RESPONSE DECREASED [None]
  - THINKING ABNORMAL [None]
  - TREMOR [None]
